FAERS Safety Report 5413274-5 (Version None)
Quarter: 2007Q3

REPORT INFORMATION
  Report Type: 
  Country: None (occurrence: None)
  Receive Date: 20070716
  Receipt Date: 20060830
  Transmission Date: 20080115
  Serious: Yes (Other)
  Sender: FDA-Public Use
  Company Number: 2006SP000470

PATIENT
  Sex: Male

DRUGS (2)
  1. EPTIFIBATIDE (S-P) [Suspect]
     Indication: CORONARY ARTERIAL STENT INSERTION
     Dosage: ONCE
     Dates: start: 20060828
  2. HEPARIN /00027704/ [Concomitant]

REACTIONS (1)
  - CEREBRAL HAEMORRHAGE [None]
